FAERS Safety Report 8127678-3 (Version None)
Quarter: 2012Q1

REPORT INFORMATION
  Report Type: 
  Country: None (occurrence: None)
  Receive Date: 20120210
  Receipt Date: 20120206
  Transmission Date: 20120608
  Serious: No
  Sender: FDA-Public Use
  Company Number: US-PFIZER INC-2012004890

PATIENT
  Sex: Male
  Weight: 79 kg

DRUGS (30)
  1. TRAZODONE [Concomitant]
     Dosage: 100 MG, 1X/DAY AT BEDTIME
     Route: 048
  2. TRAMADOL [Concomitant]
     Dosage: 50 MG, 3X/DAY AS NEEDED
     Route: 048
  3. VITAMIN D [Concomitant]
     Dosage: 1.25 MG, MONTHLY
  4. CHANTIX [Suspect]
     Dosage: 0.5 MG, 1X/DAY
     Route: 048
     Dates: start: 20120105
  5. SPIRONOLACTONE [Concomitant]
     Dosage: 50 MG, 2X/DAY
     Route: 048
  6. CYCLOBENZAPRINE [Concomitant]
     Dosage: 10 MG, 2X/DAY AS NEEDED
     Route: 048
  7. ATRIPLA [Concomitant]
     Dosage: (600-200-300 MG) TAKEN AT BEDTIME
     Route: 048
  8. FUROSEMIDE [Concomitant]
     Dosage: 20 MG, UNK
  9. DIPHENHYDRAMINE HYDROCHLORIDE [Concomitant]
     Dosage: 1 MG, 2X/DAY
     Route: 048
  10. REMERON [Concomitant]
     Dosage: UNK , 1X/DAY AT BEDTIME
  11. ZOLPIDEM TARTRATE [Concomitant]
     Dosage: 12.5 MG, 1X/DAY AT BEDTIME
     Route: 048
  12. CIALIS [Concomitant]
     Dosage: 5 MG (ONE HALF TO ONE PILL), ALTERNATE DAY AS NEEDED
     Route: 048
     Dates: start: 20100709
  13. VALACICLOVIR HYDROCHLORIDE [Concomitant]
     Dosage: 500 MG, 2X/DAY FOR FIVE TO TEN DAYS AS NEEDED
     Route: 048
     Dates: start: 20110615
  14. CHANTIX [Suspect]
     Indication: SMOKING CESSATION THERAPY
     Dosage: 0.5 MG, 1X/DAY
     Route: 048
     Dates: start: 20120103, end: 20120101
  15. NEXIUM [Concomitant]
     Dosage: UNK
  16. OMEPRAZOLE [Concomitant]
     Dosage: 40 MG, 1X/DAY
     Route: 048
     Dates: start: 20111102
  17. LISINOPRIL [Concomitant]
     Dosage: 20 MG, 1X/DAY
     Route: 048
  18. MORPHINE SULFATE [Concomitant]
     Dosage: 30 MG, 2X/DAY (EVERY 12 HOURS AS NEEDED)
     Route: 048
  19. MULTI-VITAMINS [Concomitant]
     Dosage: UNK
     Route: 048
     Dates: start: 20100830
  20. POTASSIUM CHLORIDE [Concomitant]
     Dosage: 10 MEQ, 2X/DAY
     Route: 048
  21. SERTRALINE HYDROCHLORIDE [Concomitant]
     Dosage: 150 MG (THREE 50MG TABLETS), 1X/DAY AT BEDTIME
     Route: 048
  22. TRIAMCINOLONE ACETONIDE [Concomitant]
     Dosage: UNK 2-3 TIMES DAILY TO AFFECTED AREAS
     Dates: start: 20110922
  23. VERAPAMIL [Concomitant]
     Dosage: 120 MG, 1X/DAY
     Route: 048
  24. CHANTIX [Suspect]
     Dosage: 1 MG, 2X/DAY (CONTINUING MONTH PACK)
     Route: 048
     Dates: start: 20120103, end: 20120101
  25. LORATADINE [Concomitant]
     Dosage: 10 MG, 1X/DAY AS NEEDED
  26. FUROSEMIDE [Concomitant]
     Dosage: 40 MG, (TAKE 1 DAILY)
     Route: 048
  27. AMBIEN [Concomitant]
     Dosage: UNK
  28. MORPHINE [Concomitant]
     Dosage: 30 MG, 3X/DAY
  29. VITAMIN D [Concomitant]
     Dosage: 50000 UNITS , MONTHLY
     Route: 048
     Dates: start: 20110614
  30. PROMETHAZINE HYDROCHLORIDE [Concomitant]
     Dosage: 25 MG, 2X/DAY AS NEEDED
     Route: 048

REACTIONS (3)
  - NAUSEA [None]
  - PAROSMIA [None]
  - FEELING ABNORMAL [None]
